FAERS Safety Report 26119478 (Version 1)
Quarter: 2025Q4

REPORT INFORMATION
  Report Type: Spontaneous
  Country: AU (occurrence: AU)
  Receive Date: 20251204
  Receipt Date: 20251204
  Transmission Date: 20260117
  Serious: Yes (Hospitalization, Other)
  Sender: ROCHE
  Company Number: AU-ROCHE-10000447194

PATIENT
  Age: 80 Year
  Sex: Female

DRUGS (1)
  1. GAZYVA [Suspect]
     Active Substance: OBINUTUZUMAB
     Indication: Product used for unknown indication
     Route: 065

REACTIONS (10)
  - Arthralgia [Recovered/Resolved]
  - Back pain [Recovered/Resolved]
  - Cough [Unknown]
  - Dyspnoea [Recovered/Resolved]
  - Erythema [Unknown]
  - Feeling hot [Unknown]
  - Flushing [Recovered/Resolved]
  - Hypoxia [Recovered/Resolved]
  - Somnolence [Unknown]
  - Tachypnoea [Unknown]

NARRATIVE: CASE EVENT DATE: 20250917
